FAERS Safety Report 5323172-3 (Version None)
Quarter: 2007Q2

REPORT INFORMATION
  Report Type: 
  Country: None (occurrence: None)
  Receive Date: 20070220
  Receipt Date: 20061115
  Transmission Date: 20071010
  Serious: No
  Sender: FDA-Public Use
  Company Number: WAES 0611USA04897

PATIENT
  Age: 62 Year
  Sex: Female

DRUGS (11)
  1. JANUVIA [Suspect]
     Indication: DIABETES MELLITUS
     Dosage: 100 MG/DAILY/PO
     Route: 048
     Dates: start: 20061114, end: 20061114
  2. AVANDIA [Concomitant]
  3. DIOVAN [Concomitant]
  4. KLONOPIN [Concomitant]
  5. SERZONE [Concomitant]
  6. STARLIX [Concomitant]
  7. ZETIA [Concomitant]
  8. ZYRTEC [Concomitant]
  9. [THERAPY UNSPECIFIED] [Concomitant]
  10. ATENOLOL [Concomitant]
  11. GASTROINTESTINAL PREPARATIONS [Concomitant]

REACTIONS (1)
  - BLOOD GLUCOSE ABNORMAL [None]
